FAERS Safety Report 15400158 (Version 1)
Quarter: 2018Q3

REPORT INFORMATION
  Report Type: Spontaneous
  Country: US (occurrence: US)
  Receive Date: 20180919
  Receipt Date: 20180919
  Transmission Date: 20181010
  Serious: No
  Sender: FDA-Public Use
  Company Number: US-CELGENEUS-USA-20180807761

PATIENT
  Sex: Male

DRUGS (4)
  1. POMALYST [Suspect]
     Active Substance: POMALIDOMIDE
     Indication: PLASMA CELL MYELOMA
     Dosage: 2 MILLIGRAM
     Route: 048
     Dates: start: 20151113
  2. POMALYST [Suspect]
     Active Substance: POMALIDOMIDE
     Indication: BONE CANCER
     Dosage: 3?2 MILLIGRAM
     Route: 048
     Dates: start: 201610
  3. POMALYST [Suspect]
     Active Substance: POMALIDOMIDE
     Indication: VOMITING
     Dosage: 2 MILLIGRAM
     Route: 048
  4. POMALYST [Suspect]
     Active Substance: POMALIDOMIDE
     Indication: NAUSEA
     Dosage: 2 MILLIGRAM
     Route: 048
     Dates: start: 201712

REACTIONS (1)
  - Unevaluable event [Unknown]
